FAERS Safety Report 9274556 (Version 1)
Quarter: 2013Q2

REPORT INFORMATION
  Report Type: Spontaneous
  Country: IN (occurrence: IN)
  Receive Date: 20130507
  Receipt Date: 20130507
  Transmission Date: 20140414
  Serious: Yes (Death)
  Sender: FDA-Public Use
  Company Number: IN-ROCHE-1220627

PATIENT
  Age: 50 Year
  Sex: Male

DRUGS (5)
  1. METALYSE [Suspect]
     Indication: MYOCARDIAL INFARCTION
     Dosage: 0.5 MG/KG
     Route: 042
  2. ENOXAPARIN [Concomitant]
  3. CLOPIDOGREL [Concomitant]
  4. ASPIRIN [Concomitant]
  5. ATORVASTATIN [Concomitant]

REACTIONS (2)
  - Ventricular fibrillation [Fatal]
  - Electrocardiogram ST segment elevation [Fatal]
